FAERS Safety Report 6168362-5 (Version None)
Quarter: 2009Q2

REPORT INFORMATION
  Report Type: 
  Country: None (occurrence: None)
  Receive Date: 20090427
  Receipt Date: 20090422
  Transmission Date: 20091009
  Serious: Yes (Death, Hospitalization)
  Sender: FDA-Public Use
  Company Number: HQWYE971125AUG06

PATIENT
  Sex: Male
  Weight: 85.3 kg

DRUGS (11)
  1. ADVIL [Suspect]
     Indication: SCROTAL PAIN
     Dosage: UNKNOWN AMOUNT ^ON OCCASION^
     Route: 048
     Dates: start: 20060501, end: 20060101
  2. IMURAN [Suspect]
     Indication: COLITIS ULCERATIVE
     Dosage: 100 MG DAILY
     Route: 048
     Dates: end: 20050801
  3. IMURAN [Suspect]
     Indication: ARTHRITIS
     Dosage: 150 MG DAILY
     Route: 048
     Dates: start: 20050801, end: 20060101
  4. DOXYCYCLINE [Suspect]
     Indication: SCROTAL INFECTION
     Dosage: UNKNOWN
     Route: 065
     Dates: start: 20060501, end: 20060101
  5. COLAZAL [Suspect]
     Indication: COLITIS ULCERATIVE
     Dosage: ^FOUR 750 MG CAPSULES THREE TIMES DAILY^
     Route: 048
     Dates: start: 20050801
  6. COLAZAL [Suspect]
     Dosage: ^THREE 750 MG CAPSULES THREE TIMES DAILY^
     Route: 048
  7. TYLENOL (CAPLET) [Suspect]
     Indication: SCROTAL PAIN
     Dosage: AT LEAST 6 GRAMS A DAY FOR 7 TO 10 DAYS
     Route: 048
     Dates: start: 20060501, end: 20060101
  8. ALEVE [Suspect]
     Indication: SCROTAL PAIN
     Dosage: UNKNOWN AMOUNT ^ON OCCASION^
     Route: 048
     Dates: start: 20060501, end: 20060101
  9. REMICADE [Suspect]
     Indication: COLITIS ULCERATIVE
     Dosage: 405 MG
     Route: 042
     Dates: start: 20060307, end: 20060307
  10. REMICADE [Suspect]
     Dosage: 407MG
     Route: 042
     Dates: start: 20060321, end: 20060321
  11. REMICADE [Suspect]
     Dosage: 409MG
     Route: 042
     Dates: start: 20060418, end: 20060418

REACTIONS (8)
  - AZOTAEMIA [None]
  - HAEMOGLOBIN DECREASED [None]
  - HEPATIC FAILURE [None]
  - MEMORY IMPAIRMENT [None]
  - ORCHITIS [None]
  - PERIPHERAL COLDNESS [None]
  - RENAL FAILURE [None]
  - WHITE BLOOD CELL COUNT INCREASED [None]
